FAERS Safety Report 15256614 (Version 1)
Quarter: 2018Q3

REPORT INFORMATION
  Report Type: Spontaneous
  Country: GB (occurrence: GB)
  Receive Date: 20180808
  Receipt Date: 20180808
  Transmission Date: 20181010
  Serious: Yes (Other)
  Sender: FDA-Public Use
  Company Number: GB-PFIZER INC-1672883

PATIENT
  Age: 16 Year
  Sex: Male

DRUGS (11)
  1. FENTANYL. [Suspect]
     Active Substance: FENTANYL
     Indication: INDUCTION OF ANAESTHESIA
     Dosage: 100 UG, UNK
  2. PROPOFOL. [Suspect]
     Active Substance: PROPOFOL
     Indication: INDUCTION OF ANAESTHESIA
     Dosage: 150 MG, UNK
  3. GLYCOPYRROLATE /00196202/ [Suspect]
     Active Substance: GLYCOPYRROLATE
     Indication: NEUROMUSCULAR BLOCKADE REVERSAL
     Dosage: 0.5 MG, UNK
  4. OXYGEN. [Suspect]
     Active Substance: OXYGEN
     Indication: MAINTENANCE OF ANAESTHESIA
     Route: 055
  5. EPINEPHRINE. [Concomitant]
     Active Substance: EPINEPHRINE
     Indication: VENTRICULAR FIBRILLATION
     Dosage: 1 MG, UNK
     Route: 042
  6. FLUID [Concomitant]
     Active Substance: UNSPECIFIED INGREDIENT
     Dosage: 1500 ML, UNK
     Route: 041
  7. PHENYTOIN. [Concomitant]
     Active Substance: PHENYTOIN
     Indication: SEIZURE
     Dosage: 1 G, UNK
     Route: 042
  8. ATRACURIUM BESILATE [Suspect]
     Active Substance: ATRACURIUM BESYLATE
     Indication: INDUCTION OF ANAESTHESIA
     Dosage: 30 MG, UNK
  9. NEOSTIGMINE [Suspect]
     Active Substance: NEOSTIGMINE
     Indication: NEUROMUSCULAR BLOCKADE REVERSAL
     Dosage: 2.5 N1G
  10. SEVOFLURANE. [Suspect]
     Active Substance: SEVOFLURANE
     Indication: MAINTENANCE OF ANAESTHESIA
     Route: 055
  11. NITROUS OXIDE. [Suspect]
     Active Substance: NITROUS OXIDE
     Indication: MAINTENANCE OF ANAESTHESIA
     Route: 055

REACTIONS (3)
  - Hypoxia [Unknown]
  - Laryngospasm [Recovered/Resolved]
  - Pulmonary oedema [Recovered/Resolved]
